FAERS Safety Report 5635404-2 (Version None)
Quarter: 2008Q1

REPORT INFORMATION
  Report Type: 
  Country: None (occurrence: None)
  Receive Date: 20080222
  Receipt Date: 20080212
  Transmission Date: 20080703
  Serious: Yes (Other)
  Sender: FDA-Public Use
  Company Number: US-PFIZER INC-2008013859

PATIENT
  Sex: Female
  Weight: 77 kg

DRUGS (1)
  1. CHANTIX [Suspect]
     Indication: SMOKING CESSATION THERAPY
     Dates: start: 20080123, end: 20080208

REACTIONS (2)
  - HALLUCINATION, VISUAL [None]
  - PARANOIA [None]
